FAERS Safety Report 25863687 (Version 1)
Quarter: 2025Q3

REPORT INFORMATION
  Report Type: Spontaneous
  Country: SG (occurrence: SG)
  Receive Date: 20250930
  Receipt Date: 20250930
  Transmission Date: 20251020
  Serious: Yes (Hospitalization)
  Sender: MYLAN
  Company Number: SG-MYLANLABS-2025M1082426

PATIENT
  Age: 31 Year
  Sex: Male

DRUGS (8)
  1. CELECOXIB [Suspect]
     Active Substance: CELECOXIB
     Indication: Product used for unknown indication
  2. CELECOXIB [Suspect]
     Active Substance: CELECOXIB
     Route: 065
  3. CELECOXIB [Suspect]
     Active Substance: CELECOXIB
     Route: 065
  4. CELECOXIB [Suspect]
     Active Substance: CELECOXIB
  5. EPERISONE [Suspect]
     Active Substance: EPERISONE
     Indication: Product used for unknown indication
  6. EPERISONE [Suspect]
     Active Substance: EPERISONE
     Route: 065
  7. EPERISONE [Suspect]
     Active Substance: EPERISONE
     Route: 065
  8. EPERISONE [Suspect]
     Active Substance: EPERISONE

REACTIONS (1)
  - Dermatitis bullous [Not Recovered/Not Resolved]

NARRATIVE: CASE EVENT DATE: 20250828
